FAERS Safety Report 20132655 (Version 1)
Quarter: 2021Q4

REPORT INFORMATION
  Report Type: Report from Study
  Country: US (occurrence: US)
  Receive Date: 20211130
  Receipt Date: 20211130
  Transmission Date: 20220304
  Serious: Yes (Other)
  Sender: FDA-Public Use
  Company Number: US-NOVARTISPH-NVSC2021US267843

PATIENT
  Sex: Female

DRUGS (1)
  1. ENTRESTO [Suspect]
     Active Substance: SACUBITRIL\VALSARTAN
     Indication: Product used for unknown indication
     Dosage: 200 MG (97/103 MG: SACUBITRIL 97.2 MG, VALSARTAN 102.8 MG)
     Route: 048

REACTIONS (3)
  - Kidney infection [Unknown]
  - Rhinorrhoea [Unknown]
  - Cough [Unknown]
